FAERS Safety Report 20776220 (Version 2)
Quarter: 2022Q2

REPORT INFORMATION
  Report Type: Spontaneous
  Country: JP (occurrence: JP)
  Receive Date: 20220502
  Receipt Date: 20220510
  Transmission Date: 20220721
  Serious: Yes (Other)
  Sender: FDA-Public Use
  Company Number: JP-NOVARTISPH-NVSJ2022JP089549

PATIENT

DRUGS (2)
  1. OXALIPLATIN [Suspect]
     Active Substance: OXALIPLATIN
     Indication: Adenocarcinoma gastric
     Dosage: 130 MG/M2, QD ON DAY 1OF THE 21-DAY CYCLE
     Route: 042
  2. TS-1 [Suspect]
     Active Substance: GIMERACIL\OTERACIL\TEGAFUR
     Indication: Adenocarcinoma gastric
     Dosage: 80 MG/M2, QD FOR 14 DAYS ON 7 DAYS OFF
     Route: 048

REACTIONS (2)
  - Hyponatraemia [Unknown]
  - Product use in unapproved indication [Unknown]
